FAERS Safety Report 10381282 (Version 1)
Quarter: 2014Q3

REPORT INFORMATION
  Report Type: Spontaneous
  Country: US (occurrence: None)
  Receive Date: 20140812
  Receipt Date: 20140812
  Transmission Date: 20150326
  Serious: Yes (Other)
  Sender: FDA-Public Use
  Company Number: None

PATIENT
  Age: 89 Year
  Sex: Female

DRUGS (1)
  1. EXJADE [Suspect]
     Active Substance: DEFERASIROX
     Indication: PSORIATIC ARTHROPATHY
     Route: 048
     Dates: start: 20140618, end: 20140701

REACTIONS (2)
  - Rash [None]
  - Skin burning sensation [None]

NARRATIVE: CASE EVENT DATE: 20140701
